FAERS Safety Report 11047514 (Version 14)
Quarter: 2019Q3

REPORT INFORMATION
  Report Type: Report from Study
  Country: US (occurrence: US)
  Receive Date: 20150420
  Receipt Date: 20190904
  Transmission Date: 20191004
  Serious: Yes (Hospitalization)
  Sender: FDA-Public Use
  Company Number: US-SA-2015SA048829

PATIENT
  Age: 42 Year
  Sex: Female

DRUGS (1)
  1. ALEMTUZUMAB [Suspect]
     Active Substance: ALEMTUZUMAB
     Indication: MULTIPLE SCLEROSIS
     Dosage: 12 MG,QD
     Route: 041
     Dates: start: 20150406, end: 20150408

REACTIONS (27)
  - Mobility decreased [Unknown]
  - Hot flush [Not Recovered/Not Resolved]
  - Dysphagia [Not Recovered/Not Resolved]
  - Dysphonia [Not Recovered/Not Resolved]
  - Thyroid function test abnormal [Not Recovered/Not Resolved]
  - Asthenia [Unknown]
  - Chest pain [Not Recovered/Not Resolved]
  - Dysstasia [Unknown]
  - Feeling hot [Not Recovered/Not Resolved]
  - Asthenia [Not Recovered/Not Resolved]
  - Nausea [Recovering/Resolving]
  - Thyroid disorder [Not Recovered/Not Resolved]
  - Painful respiration [Not Recovered/Not Resolved]
  - Scab [Unknown]
  - Hyperhidrosis [Not Recovered/Not Resolved]
  - Throat tightness [Not Recovered/Not Resolved]
  - Memory impairment [Not Recovered/Not Resolved]
  - Headache [Not Recovered/Not Resolved]
  - Pharyngeal swelling [Not Recovered/Not Resolved]
  - Cardiovascular disorder [Unknown]
  - Pain [Not Recovered/Not Resolved]
  - Fatigue [Unknown]
  - Blood potassium decreased [Unknown]
  - Dry skin [Unknown]
  - Oropharyngeal pain [Not Recovered/Not Resolved]
  - Dyspnoea [Unknown]
  - Myalgia [Not Recovered/Not Resolved]

NARRATIVE: CASE EVENT DATE: 2015
